FAERS Safety Report 10182352 (Version 1)
Quarter: 2014Q2

REPORT INFORMATION
  Report Type: Spontaneous
  Country: CN (occurrence: CN)
  Receive Date: 20140520
  Receipt Date: 20140520
  Transmission Date: 20141212
  Serious: Yes (Other)
  Sender: FDA-Public Use
  Company Number: CN-PFIZER INC-2014134153

PATIENT
  Age: 20 Year
  Sex: Male

DRUGS (3)
  1. EPIRUBICIN HCL [Suspect]
     Indication: OSTEOSARCOMA
     Dosage: 15 G, 1X/DAY
     Route: 041
     Dates: start: 20121228, end: 20121228
  2. METHOTREXATE [Suspect]
     Indication: OSTEOSARCOMA
     Dosage: 40 MG, 1X/DAY
     Route: 041
     Dates: start: 20130117, end: 20130119
  3. CISPLATIN [Suspect]
     Indication: OSTEOSARCOMA
     Dosage: 160 MG, 1X/DAY
     Route: 041
     Dates: start: 20130107, end: 20130107

REACTIONS (2)
  - Bone marrow failure [Recovering/Resolving]
  - Hepatic function abnormal [Recovering/Resolving]
